FAERS Safety Report 10955513 (Version 2)
Quarter: 2015Q3

REPORT INFORMATION
  Report Type: Spontaneous
  Country: IT (occurrence: IT)
  Receive Date: 20150326
  Receipt Date: 20150803
  Transmission Date: 20151125
  Serious: Yes (Other)
  Sender: FDA-Public Use
  Company Number: IT-ACCORD-029467

PATIENT
  Age: 50 Year
  Sex: Female
  Weight: 75 kg

DRUGS (1)
  1. MICOFENOLATO MOFETIL ACCORD [Suspect]
     Active Substance: MYCOPHENOLATE MOFETIL
     Indication: SYSTEMIC SCLEROSIS
     Route: 048
     Dates: start: 20150220

REACTIONS (5)
  - Condition aggravated [Not Recovered/Not Resolved]
  - Systemic sclerosis [Not Recovered/Not Resolved]
  - Product substitution issue [Unknown]
  - No therapeutic response [Not Recovered/Not Resolved]
  - Off label use [Unknown]

NARRATIVE: CASE EVENT DATE: 20150308
